FAERS Safety Report 24087915 (Version 1)
Quarter: 2024Q3

REPORT INFORMATION
  Report Type: Report from Study
  Country: CA (occurrence: CA)
  Receive Date: 20240715
  Receipt Date: 20240715
  Transmission Date: 20241017
  Serious: Yes (Other)
  Sender: JOHNSON AND JOHNSON
  Company Number: CA-JNJFOC-20240456054

PATIENT
  Age: 17 Year
  Sex: Male
  Weight: 61.7 kg

DRUGS (2)
  1. REMICADE [Suspect]
     Active Substance: INFLIXIMAB
     Indication: Colitis ulcerative
     Route: 041
  2. REMICADE [Suspect]
     Active Substance: INFLIXIMAB
     Indication: Crohn^s disease
     Dosage: 6 VIALS
     Route: 041
     Dates: start: 20201219

REACTIONS (3)
  - Colitis ulcerative [Recovered/Resolved]
  - Reinfusion [Unknown]
  - Underdose [Unknown]

NARRATIVE: CASE EVENT DATE: 20240411
